FAERS Safety Report 6827284-4 (Version None)
Quarter: 2010Q3

REPORT INFORMATION
  Report Type: 
  Country: None (occurrence: None)
  Receive Date: 20100709
  Receipt Date: 20100701
  Transmission Date: 20110219
  Serious: Yes (Hospitalization)
  Sender: FDA-Public Use
  Company Number: JP-MILLENNIUM PHARMACEUTICALS, INC.-2010-03061

PATIENT

DRUGS (2)
  1. VELCADE [Suspect]
     Indication: MULTIPLE MYELOMA
     Dosage: 1.7 MG, UNK
     Route: 042
     Dates: start: 20100527, end: 20100530
  2. VELCADE [Suspect]
     Dosage: 1.3 MG, UNK
     Route: 042
     Dates: start: 20100603, end: 20100603

REACTIONS (1)
  - DYSURIA [None]
